FAERS Safety Report 15803077 (Version 2)
Quarter: 2019Q1

REPORT INFORMATION
  Report Type: Spontaneous
  Country: GB (occurrence: GB)
  Receive Date: 20190109
  Receipt Date: 20190114
  Transmission Date: 20190417
  Serious: Yes (Hospitalization)
  Sender: FDA-Public Use
  Company Number: GB-009507513-1811GBR000802

PATIENT
  Sex: Female

DRUGS (1)
  1. NEXPLANON [Suspect]
     Active Substance: ETONOGESTREL
     Dosage: ONE IMPLANT, UNK
     Route: 059
     Dates: start: 2015

REACTIONS (4)
  - Vaginal haemorrhage [Unknown]
  - Pregnancy test false positive [Recovered/Resolved]
  - Obesity [Unknown]
  - Menstruation delayed [Unknown]

NARRATIVE: CASE EVENT DATE: 2018
